FAERS Safety Report 17392153 (Version 2)
Quarter: 2020Q1

REPORT INFORMATION
  Report Type: Report from Study
  Country: PR (occurrence: PR)
  Receive Date: 20200207
  Receipt Date: 20200212
  Transmission Date: 20200409
  Serious: Yes (Hospitalization)
  Sender: FDA-Public Use
  Company Number: PR-GILEAD-2020-0449473

PATIENT
  Age: 38 Year
  Sex: Male
  Weight: 76.5 kg

DRUGS (4)
  1. PLACEBO [Suspect]
     Active Substance: UNSPECIFIED INGREDIENT
     Dosage: 1 DOSAGE FORM, QD; PLACEBO (VS F/TAF)
     Route: 048
     Dates: start: 20171013, end: 20190214
  2. BICTEGRAVIR W/EMTRICITABINE/TENOFOVIR ALAFENAMIDE [Suspect]
     Active Substance: BICTEGRAVIR\EMTRICITABINE\TENOFOVIR ALAFENAMIDE
     Indication: HIV INFECTION
     Dosage: 1 DOSAGE FORM; B/F/TAF VS PLACEBO
     Route: 048
     Dates: start: 20171013, end: 20190214
  3. BICTEGRAVIR W/EMTRICITABINE/TENOFOVIR ALAFENAMIDE [Suspect]
     Active Substance: BICTEGRAVIR\EMTRICITABINE\TENOFOVIR ALAFENAMIDE
     Dosage: 1 DOSAGE FORM; OPEN LABEL PHASE
     Route: 048
     Dates: start: 20190215
  4. PLACEBO [Suspect]
     Active Substance: UNSPECIFIED INGREDIENT
     Indication: HIV INFECTION
     Dosage: 50 MG, QD; PLACEBO (VS DTG )
     Route: 048
     Dates: start: 20171013, end: 20190214

REACTIONS (2)
  - Nephrolithiasis [Recovered/Resolved]
  - Urinary tract obstruction [Recovered/Resolved]

NARRATIVE: CASE EVENT DATE: 20200116
